FAERS Safety Report 26107276 (Version 1)
Quarter: 2025Q4

REPORT INFORMATION
  Report Type: Spontaneous
  Country: US (occurrence: None)
  Receive Date: 20251127
  Receipt Date: 20251127
  Transmission Date: 20260117
  Serious: Yes (Other)
  Sender: FDA-CTU
  Company Number: None

PATIENT
  Age: 39 Year
  Sex: Female
  Weight: 81 kg

DRUGS (2)
  1. ZEPBOUND [Suspect]
     Active Substance: TIRZEPATIDE
     Indication: Sleep apnoea syndrome
     Dosage: ONCE A WEEK SUBCUTANEOUS?
     Route: 058
     Dates: start: 20251012
  2. ZEPBOUND [Suspect]
     Active Substance: TIRZEPATIDE
     Indication: Weight control

REACTIONS (4)
  - Intentional product use issue [None]
  - Injection site pruritus [None]
  - Injection site rash [None]
  - Skin discolouration [None]

NARRATIVE: CASE EVENT DATE: 20251126
